FAERS Safety Report 19471763 (Version 1)
Quarter: 2021Q2

REPORT INFORMATION
  Report Type: Spontaneous
  Country: CA (occurrence: CA)
  Receive Date: 20210628
  Receipt Date: 20210628
  Transmission Date: 20210717
  Serious: No
  Sender: FDA-Public Use
  Company Number: CA-BAUSCH-BL-2021-019336

PATIENT
  Sex: Female

DRUGS (2)
  1. XIFAXAN [Suspect]
     Active Substance: RIFAXIMIN
     Indication: GASTROINTESTINAL BACTERIAL OVERGROWTH
     Dosage: JUST 2 PILLS
     Route: 048
  2. XIFAXAN [Suspect]
     Active Substance: RIFAXIMIN
     Indication: PRODUCT USE IN UNAPPROVED INDICATION

REACTIONS (5)
  - Anxiety [Not Recovered/Not Resolved]
  - Heart rate increased [Unknown]
  - Product use in unapproved indication [Unknown]
  - Nervousness [Unknown]
  - Insomnia [Not Recovered/Not Resolved]
